FAERS Safety Report 5221223-8 (Version None)
Quarter: 2007Q1

REPORT INFORMATION
  Report Type: 
  Country: None (occurrence: None)
  Receive Date: 20070126
  Receipt Date: 20070116
  Transmission Date: 20070707
  Serious: Yes (Hospitalization)
  Sender: FDA-Public Use
  Company Number: FR-PFIZER INC-2007004952

PATIENT
  Age: 30 Year
  Sex: Female

DRUGS (6)
  1. NEURONTIN [Suspect]
     Route: 048
     Dates: start: 20051119, end: 20051208
  2. NORSET [Suspect]
     Dosage: TEXT:2 DF
     Route: 048
  3. VALPROIC ACID [Suspect]
     Dosage: TEXT:2 DF
     Route: 048
  4. BEPANTHEN ^ROCHE^ [Concomitant]
     Route: 048
  5. BIOTIN [Concomitant]
     Route: 048
  6. INNOHEP [Concomitant]
     Dates: end: 20051121

REACTIONS (4)
  - ALANINE AMINOTRANSFERASE INCREASED [None]
  - ASPARTATE AMINOTRANSFERASE INCREASED [None]
  - GAMMA-GLUTAMYLTRANSFERASE INCREASED [None]
  - HEPATIC ENZYME INCREASED [None]
